FAERS Safety Report 16256169 (Version 1)
Quarter: 2019Q2

REPORT INFORMATION
  Report Type: Spontaneous
  Country: US (occurrence: US)
  Receive Date: 20190430
  Receipt Date: 20190430
  Transmission Date: 20190711
  Serious: No
  Sender: FDA-Public Use
  Company Number: US-AMNEAL PHARMACEUTICALS-2018AMN00343

PATIENT
  Sex: Male

DRUGS (1)
  1. HYDROCODONE BITARTRATE AND IBUPROFEN [Suspect]
     Active Substance: HYDROCODONE BITARTRATE\IBUPROFEN
     Indication: PAIN
     Dosage: 1 TABLETS, 6X/DAY
     Route: 048
     Dates: start: 20180410

REACTIONS (1)
  - Drug ineffective [Unknown]
